FAERS Safety Report 11165045 (Version 1)
Quarter: 2015Q2

REPORT INFORMATION
  Report Type: Spontaneous
  Country: US (occurrence: US)
  Receive Date: 20150604
  Receipt Date: 20150604
  Transmission Date: 20150821
  Serious: Yes (Death)
  Sender: FDA-Public Use
  Company Number: US-PFIZER INC-2015184767

PATIENT
  Age: 89 Year
  Sex: Female
  Weight: 48 kg

DRUGS (1)
  1. SUTENT [Suspect]
     Active Substance: SUNITINIB MALATE
     Indication: NEOPLASM MALIGNANT
     Dosage: 50 MG, UNK
     Dates: end: 20150428

REACTIONS (2)
  - Disease progression [Fatal]
  - Neoplasm malignant [Fatal]
